FAERS Safety Report 7271327-3 (Version None)
Quarter: 2011Q1

REPORT INFORMATION
  Report Type: 
  Country: None (occurrence: None)
  Receive Date: 20110203
  Receipt Date: 20110118
  Transmission Date: 20110831
  Serious: No
  Sender: FDA-Public Use
  Company Number: US-BIOGENIDEC-2011BI002040

PATIENT
  Age: 36 Year
  Sex: Male

DRUGS (2)
  1. TYSABRI [Suspect]
     Indication: MULTIPLE SCLEROSIS
     Route: 042
     Dates: start: 20101028, end: 20110101
  2. BENADRYL [Concomitant]
     Indication: PREMEDICATION

REACTIONS (3)
  - PRURITUS GENERALISED [None]
  - HYPERSENSITIVITY [None]
  - URTICARIA [None]
